FAERS Safety Report 20633173 (Version 1)
Quarter: 2022Q1

REPORT INFORMATION
  Report Type: Spontaneous
  Country: US (occurrence: None)
  Receive Date: 20220324
  Receipt Date: 20220324
  Transmission Date: 20220423
  Serious: Yes (Other)
  Sender: FDA-Public Use
  Company Number: None

PATIENT
  Age: 18 Year
  Sex: Male
  Weight: 94.9 kg

DRUGS (1)
  1. FIRDAPSE [Suspect]
     Active Substance: AMIFAMPRIDINE PHOSPHATE
     Indication: Myasthenic syndrome
     Dosage: FREQUENCY : 4 TIMES A DAY;?
     Route: 048
     Dates: start: 20220312

REACTIONS (4)
  - Fatigue [None]
  - Muscular weakness [None]
  - Weight decreased [None]
  - Muscular weakness [None]

NARRATIVE: CASE EVENT DATE: 20220323
